FAERS Safety Report 17075211 (Version 2)
Quarter: 2020Q1

REPORT INFORMATION
  Report Type: Spontaneous
  Country: US (occurrence: US)
  Receive Date: 20191126
  Receipt Date: 20200114
  Transmission Date: 20200409
  Serious: Yes (Death)
  Sender: FDA-Public Use
  Company Number: US-PFIZER INC-2019508961

PATIENT
  Age: 41 Year
  Sex: Female

DRUGS (1)
  1. REVATIO [Suspect]
     Active Substance: SILDENAFIL CITRATE
     Dosage: 20 MG, TID (THREE TIMES A DAY)
     Route: 048

REACTIONS (3)
  - Respiratory failure [Fatal]
  - Disease progression [Fatal]
  - Pulmonary hypertension [Fatal]
